FAERS Safety Report 11702482 (Version 1)
Quarter: 2015Q4

REPORT INFORMATION
  Report Type: Spontaneous
  Country: GB (occurrence: GB)
  Receive Date: 20151027
  Receipt Date: 20151027
  Transmission Date: 20160304
  Serious: Yes (Disabling)
  Sender: FDA-Public Use
  Company Number: GB-ACORDA-ACO_110396_2015

PATIENT
  Sex: Female

DRUGS (2)
  1. QUTENZA [Suspect]
     Active Substance: CAPSAICIN
     Indication: COMPLEX REGIONAL PAIN SYNDROME
  2. QUTENZA [Suspect]
     Active Substance: CAPSAICIN
     Indication: COMPLEX REGIONAL PAIN SYNDROME
     Dosage: 3 DF, UNK
     Route: 061
     Dates: start: 20150202

REACTIONS (10)
  - Application site haemorrhage [Unknown]
  - Quality of life decreased [Unknown]
  - Application site pain [Unknown]
  - Discomfort [Unknown]
  - Application site vesicles [Unknown]
  - Wound [Unknown]
  - Application site scar [Unknown]
  - Infection [Unknown]
  - Application site ulcer [None]
  - Product use issue [Unknown]
